FAERS Safety Report 7644278-X (Version None)
Quarter: 2011Q3

REPORT INFORMATION
  Report Type: 
  Country: None (occurrence: None)
  Receive Date: 20110729
  Receipt Date: 20110722
  Transmission Date: 20111222
  Serious: Yes (Hospitalization)
  Sender: FDA-Public Use
  Company Number: PHHY2011US38328

PATIENT
  Sex: Female

DRUGS (7)
  1. AVELOX [Concomitant]
     Dosage: 400 MG, UNK
  2. CHEMOTHERAPEUTICS [Concomitant]
  3. EXJADE [Suspect]
     Indication: SICKLE CELL ANAEMIA
     Dosage: 1500 MG, QD
     Route: 048
  4. PHENERGAN HCL [Concomitant]
     Dosage: 25 MG Q4 HOURS PRN
  5. HYDREA [Concomitant]
     Dosage: 500 MG, BID
  6. DILAUDID [Concomitant]
     Dosage: 04 MG Q4 HOURS PRN
  7. PERCOCET [Concomitant]

REACTIONS (21)
  - HAEMOCHROMATOSIS [None]
  - HAEMATOCRIT DECREASED [None]
  - LEFT VENTRICULAR DYSFUNCTION [None]
  - THROMBOCYTOSIS [None]
  - SOMNOLENCE [None]
  - HAEMOGLOBIN DECREASED [None]
  - PNEUMONIA [None]
  - ATELECTASIS [None]
  - HEART RATE INCREASED [None]
  - SICKLE CELL ANAEMIA WITH CRISIS [None]
  - ABDOMINAL PAIN [None]
  - HYPOXIA [None]
  - EJECTION FRACTION DECREASED [None]
  - RESPIRATORY DISTRESS [None]
  - INSOMNIA [None]
  - DYSPNOEA [None]
  - HYPOKINESIA [None]
  - RETICULOCYTE COUNT INCREASED [None]
  - PAIN IN EXTREMITY [None]
  - PYREXIA [None]
  - WHITE BLOOD CELL COUNT INCREASED [None]
